FAERS Safety Report 18129591 (Version 1)
Quarter: 2020Q3

REPORT INFORMATION
  Report Type: Spontaneous
  Country: US (occurrence: US)
  Receive Date: 20200810
  Receipt Date: 20200810
  Transmission Date: 20201103
  Serious: Yes (Hospitalization)
  Sender: FDA-Public Use
  Company Number: None

PATIENT
  Age: 58 Year
  Sex: Female

DRUGS (11)
  1. DEXTROAMPHET SACCHARAT, AMPHET ASPARTATE, DEXTROAMPHET SULFATE AND AMPHET SULFAT [Concomitant]
     Active Substance: AMPHETAMINE ASPARTATE\AMPHETAMINE SULFATE\DEXTROAMPHETAMINE SACCHARATE\DEXTROAMPHETAMINE SULFATE
  2. METHOCARBAM [Concomitant]
     Active Substance: METHOCARBAMOL
  3. ACETAMINOPHEN. [Concomitant]
     Active Substance: ACETAMINOPHEN
  4. HUMIRA [Suspect]
     Active Substance: ADALIMUMAB
     Indication: ANKYLOSING SPONDYLITIS
     Dosage: ?          OTHER FREQUENCY:EVERY 2 WEEKS;?
     Route: 058
     Dates: start: 20200527
  5. ACAMPRO [Concomitant]
  6. TIZANIDINE. [Concomitant]
     Active Substance: TIZANIDINE
  7. BUPREN/NALOX [Concomitant]
     Active Substance: BUPRENORPHINE\NALOXONE
  8. OXYCODONE [Concomitant]
     Active Substance: OXYCODONE
  9. GABAPENTIN. [Concomitant]
     Active Substance: GABAPENTIN
  10. PANTOPRAZOLE [Concomitant]
     Active Substance: PANTOPRAZOLE
  11. LISINOPRIL. [Concomitant]
     Active Substance: LISINOPRIL

REACTIONS (2)
  - Illness [None]
  - Product dose omission issue [None]

NARRATIVE: CASE EVENT DATE: 20200705
